FAERS Safety Report 11131716 (Version 1)
Quarter: 2015Q2

REPORT INFORMATION
  Report Type: Spontaneous
  Country: US (occurrence: US)
  Receive Date: 20150522
  Receipt Date: 20150522
  Transmission Date: 20150821
  Serious: Yes (Other)
  Sender: FDA-Public Use
  Company Number: US-RECKITT BENCKISER PHARMACEUTICAL, INC-RB-079426-2015

PATIENT
  Age: 54 Year
  Sex: Female

DRUGS (3)
  1. SUBOXONE [Suspect]
     Active Substance: BUPRENORPHINE HYDROCHLORIDE\NALOXONE HYDROCHLORIDE
     Indication: DRUG DEPENDENCE
     Dosage: 8 MG, BID
     Route: 060
  2. SUBOXONE [Suspect]
     Active Substance: BUPRENORPHINE HYDROCHLORIDE\NALOXONE HYDROCHLORIDE
     Indication: PAIN
  3. SUBOXONE [Suspect]
     Active Substance: BUPRENORPHINE HYDROCHLORIDE\NALOXONE HYDROCHLORIDE
     Indication: PRODUCT USED FOR UNKNOWN INDICATION
     Dosage: VARIOUS DOSAGE ACCORDING TO HER NEED, SOMETIMES CUTTING THE FILM TO ACHIEVE THE DESIRED DOSING
     Route: 065

REACTIONS (7)
  - Suicide attempt [Unknown]
  - Intentional self-injury [Unknown]
  - Substance abuse [Recovered/Resolved]
  - Loss of consciousness [Recovered/Resolved]
  - Drug withdrawal syndrome [Unknown]
  - Wrong technique in drug usage process [Recovered/Resolved]
  - Product use issue [Unknown]
